FAERS Safety Report 10281916 (Version 1)
Quarter: 2014Q3

REPORT INFORMATION
  Report Type: Spontaneous
  Country: US (occurrence: US)
  Receive Date: 20140707
  Receipt Date: 20140707
  Transmission Date: 20150326
  Serious: Yes (Other)
  Sender: FDA-Public Use
  Company Number: US-BAYER-2014-099295

PATIENT
  Age: 62 Year
  Sex: Female

DRUGS (1)
  1. CIPRO [Suspect]
     Active Substance: CIPROFLOXACIN HYDROCHLORIDE
     Indication: CYSTITIS
     Dosage: 250 MG, UNK
     Dates: start: 20140609

REACTIONS (4)
  - Anxiety [None]
  - Paraesthesia [None]
  - Abasia [None]
  - Hypoaesthesia [None]
